FAERS Safety Report 16248827 (Version 1)
Quarter: 2019Q2

REPORT INFORMATION
  Report Type: Spontaneous
  Country: FR (occurrence: FR)
  Receive Date: 20190429
  Receipt Date: 20190429
  Transmission Date: 20190711
  Serious: Yes (Life-Threatening)
  Sender: FDA-Public Use
  Company Number: FR-ACCORD-124358

PATIENT
  Age: 8 Year
  Sex: Female
  Weight: 19.8 kg

DRUGS (4)
  1. VELBE [Suspect]
     Active Substance: VINBLASTINE SULFATE
     Indication: OVARIAN GERM CELL TUMOUR
     Dosage: STRENGTH: 10 MG
     Route: 042
     Dates: start: 20170223, end: 20170224
  2. DOXORUBICIN [Suspect]
     Active Substance: DOXORUBICIN
     Indication: OVARIAN GERM CELL TUMOUR
     Dosage: STRENGTH: 2 MG/ML
     Route: 042
     Dates: start: 20170225, end: 20170225
  3. CISPLATIN. [Suspect]
     Active Substance: CISPLATIN
     Indication: OVARIAN GERM CELL TUMOUR
     Route: 042
     Dates: start: 20170225, end: 20170227
  4. BLEOMYCINE BELLON [Suspect]
     Active Substance: BLEOMYCIN SULFATE
     Indication: OVARIAN GERM CELL TUMOUR
     Dosage: STRENGTH: 15 MG
     Route: 042
     Dates: start: 20170223, end: 20170224

REACTIONS (4)
  - Clostridium difficile colitis [Recovered/Resolved]
  - Pneumonia cryptococcal [Recovered/Resolved]
  - Urinary tract infection [Recovered/Resolved]
  - Febrile bone marrow aplasia [Recovered/Resolved]

NARRATIVE: CASE EVENT DATE: 201703
